FAERS Safety Report 6015549-8 (Version None)
Quarter: 2008Q4

REPORT INFORMATION
  Report Type: 
  Country: None (occurrence: None)
  Receive Date: 20081219
  Receipt Date: 20081219
  Transmission Date: 20090506
  Serious: No
  Sender: FDA-Public Use
  Company Number: None

PATIENT
  Sex: Female
  Weight: 78.18 kg

DRUGS (2)
  1. PRENATAL PLUS (PRENATAL MULTIVITAMINS) [Suspect]
     Dosage: 1 TAB QD ORAL
     Route: 048
     Dates: start: 20071203, end: 20081218
  2. TYLENOL (CAPLET) [Concomitant]

REACTIONS (1)
  - BREAST PAIN [None]
